FAERS Safety Report 7999219-2 (Version None)
Quarter: 2011Q4

REPORT INFORMATION
  Report Type: 
  Country: None (occurrence: None)
  Receive Date: 20111221
  Receipt Date: 20111219
  Transmission Date: 20120403
  Serious: Yes (Hospitalization, Other)
  Sender: FDA-Public Use
  Company Number: US-PFIZER INC-2011047853

PATIENT
  Sex: Female
  Weight: 84.807 kg

DRUGS (1)
  1. CALAN [Suspect]
     Indication: HYPERTENSION
     Dosage: 350 MG, DAILY

REACTIONS (3)
  - PNEUMONIA [None]
  - LUNG DISORDER [None]
  - OXYGEN SATURATION DECREASED [None]
